FAERS Safety Report 25245670 (Version 3)
Quarter: 2025Q4

REPORT INFORMATION
  Report Type: Report from Study
  Country: EU (occurrence: EU)
  Receive Date: 20250428
  Receipt Date: 20251016
  Transmission Date: 20260117
  Serious: Yes (Hospitalization)
  Sender: ABBVIE
  Company Number: EU-ABBVIE-6149013

PATIENT
  Age: 66 Year
  Sex: Male
  Weight: 92 kg

DRUGS (3)
  1. CARBIDOPA [Suspect]
     Active Substance: CARBIDOPA
     Indication: Parkinson^s disease
     Route: 050
     Dates: start: 20250217
  2. CARBIDOPA [Suspect]
     Active Substance: CARBIDOPA
     Dosage: DAY PUMP,?MORNING DOSAGE(ML):12.0?CONTINUOUS DOSAGE(ML/H):2.3?EXTRA DOSAGE(ML):1.00,?THERAPY DURA...
     Route: 050
     Dates: start: 20250217, end: 20250219
  3. CARBIDOPA [Suspect]
     Active Substance: CARBIDOPA
     Dosage: DAY PUMP,?MORNING DOSAGE(ML):12.0?CONTINUOUS DOSAGE(ML/H):2.0?EXTRA DOSAGE(ML):1,?THERAPY DURATIO...
     Route: 050
     Dates: start: 20250219

REACTIONS (23)
  - Epididymitis [Unknown]
  - Muscle rigidity [Not Recovered/Not Resolved]
  - Stoma site infection [Not Recovered/Not Resolved]
  - Stoma site pain [Not Recovered/Not Resolved]
  - Infection [Not Recovered/Not Resolved]
  - Fatigue [Not Recovered/Not Resolved]
  - Tremor [Not Recovered/Not Resolved]
  - Gait disturbance [Recovered/Resolved]
  - Freezing phenomenon [Not Recovered/Not Resolved]
  - Bradykinesia [Not Recovered/Not Resolved]
  - Urinary tract infection [Recovered/Resolved]
  - On and off phenomenon [Recovering/Resolving]
  - Fall [Not Recovered/Not Resolved]
  - Musculoskeletal stiffness [Unknown]
  - Musculoskeletal disorder [Unknown]
  - Disease susceptibility [Unknown]
  - Dyskinesia [Unknown]
  - Stoma site hypergranulation [Unknown]
  - Restless legs syndrome [Not Recovered/Not Resolved]
  - Cognitive disorder [Not Recovered/Not Resolved]
  - Poor quality sleep [Not Recovered/Not Resolved]
  - Urinary tract disorder [Recovering/Resolving]
  - Faeces hard [Unknown]

NARRATIVE: CASE EVENT DATE: 20250101
